FAERS Safety Report 8104325-8 (Version None)
Quarter: 2012Q1

REPORT INFORMATION
  Report Type: 
  Country: None (occurrence: None)
  Receive Date: 20120130
  Receipt Date: 20120125
  Transmission Date: 20120608
  Serious: Yes (Disabling)
  Sender: FDA-Public Use
  Company Number: JP-B.I. PHARMACEUTICALS,INC./RIDGEFIELD-2011-BP-21731NB

PATIENT
  Sex: Male
  Weight: 66 kg

DRUGS (17)
  1. MUCOSTA [Concomitant]
     Dosage: 300 MG
     Route: 065
  2. VESICARE OD [Concomitant]
     Dosage: 2.5 MG
     Route: 065
  3. GLYBURIDE [Concomitant]
     Dosage: 2.5 MG
     Route: 065
  4. ZOLOFT [Concomitant]
     Dosage: 50 MG
     Route: 065
  5. BUFFERIN [Concomitant]
     Dosage: 8 MG
     Route: 065
  6. LENDORMIN D [Concomitant]
     Dosage: 0.25 MG
     Route: 065
  7. URSO 250 [Concomitant]
     Dosage: 300 MG
     Route: 065
  8. PRADAXA [Suspect]
     Indication: PROPHYLAXIS
     Dosage: 440 MG
     Route: 048
  9. TENORMIN [Concomitant]
     Dosage: 25 MG
     Route: 065
  10. HALTHROW [Concomitant]
     Dosage: 0.2 MG
     Route: 065
  11. VESICARE [Concomitant]
     Dosage: 2.5 MG
     Route: 065
  12. PRADAXA [Suspect]
     Dosage: 220 MG
     Route: 048
     Dates: start: 20110903, end: 20110916
  13. BASEN OD [Concomitant]
     Dosage: 0.6 MG
     Route: 065
  14. MINZAIN [Concomitant]
     Dosage: 0.25 MG
     Route: 065
  15. DIGOXIN [Concomitant]
     Dosage: 0.25 MG
     Route: 065
  16. CALCIUM LACTATE HYDRATE [Concomitant]
     Route: 065
  17. HOCHU-EKKI-TO [Concomitant]
     Route: 065

REACTIONS (2)
  - OVERDOSE [None]
  - RENAL IMPAIRMENT [None]
